FAERS Safety Report 6626170-2 (Version None)
Quarter: 2010Q1

REPORT INFORMATION
  Report Type: 
  Country: None (occurrence: None)
  Receive Date: 20100309
  Receipt Date: 20100309
  Transmission Date: 20100710
  Serious: Yes (Hospitalization)
  Sender: FDA-Public Use
  Company Number: None

PATIENT
  Age: 55 Year
  Sex: Male
  Weight: 67.73 kg

DRUGS (1)
  1. CISPLATIN [Suspect]
     Dosage: 91 MG ONCE
     Dates: start: 20090806, end: 20090822

REACTIONS (3)
  - AMNESIA [None]
  - FEBRILE NEUTROPENIA [None]
  - TACHYCARDIA [None]
